FAERS Safety Report 11404819 (Version 2)
Quarter: 2015Q3

REPORT INFORMATION
  Report Type: Report from Study
  Country: EC (occurrence: EC)
  Receive Date: 20150821
  Receipt Date: 20150908
  Transmission Date: 20151125
  Serious: Yes (Hospitalization)
  Sender: FDA-Public Use
  Company Number: PHHY2014EC143087

PATIENT
  Age: 13 Year
  Sex: Male
  Weight: 36.12 kg

DRUGS (3)
  1. EXJADE [Suspect]
     Active Substance: DEFERASIROX
     Dosage: 30 MG/KG, QD (1000 MG DAILY)
     Route: 048
     Dates: end: 20150818
  2. EXJADE [Suspect]
     Active Substance: DEFERASIROX
     Indication: SICKLE CELL ANAEMIA
     Dosage: 15 MG/KG, QD (500 MG DAILY)
     Route: 048
     Dates: start: 20110601
  3. EXJADE [Suspect]
     Active Substance: DEFERASIROX
     Dosage: 1.5 DF (1.5 TABLET) QD (DAILY)
     Route: 065

REACTIONS (7)
  - Red blood cell count decreased [Recovered/Resolved]
  - Red blood cell count decreased [Recovered/Resolved]
  - Pallor [Recovered/Resolved]
  - Bone pain [Recovered/Resolved]
  - Arthralgia [Recovered/Resolved]
  - Splenic cyst [Unknown]
  - Off label use [Unknown]

NARRATIVE: CASE EVENT DATE: 20141025
